FAERS Safety Report 7273961-3 (Version None)
Quarter: 2011Q1

REPORT INFORMATION
  Report Type: 
  Country: None (occurrence: None)
  Receive Date: 20110203
  Receipt Date: 20110128
  Transmission Date: 20110831
  Serious: Yes (Death, Other)
  Sender: FDA-Public Use
  Company Number: DE-MERCK-1101DEU00067

PATIENT
  Age: 88 Year
  Sex: Female

DRUGS (2)
  1. LINEZOLID [Concomitant]
     Indication: STAPHYLOCOCCAL INFECTION
     Route: 065
  2. INVANZ [Suspect]
     Indication: STAPHYLOCOCCAL INFECTION
     Route: 041

REACTIONS (2)
  - DEATH [None]
  - EPILEPSY [None]
